FAERS Safety Report 8466191-0 (Version None)
Quarter: 2012Q2

REPORT INFORMATION
  Report Type: 
  Country: None (occurrence: None)
  Receive Date: 20120626
  Receipt Date: 20120613
  Transmission Date: 20120825
  Serious: Yes (Hospitalization)
  Sender: FDA-Public Use
  Company Number: US-ELI_LILLY_AND_COMPANY-US201205006980

PATIENT
  Age: 86 Year
  Sex: Female
  Weight: 55.782 kg

DRUGS (8)
  1. FORTEO [Suspect]
     Dosage: 20 UG, QD
  2. OMEPRAZOLE [Concomitant]
     Dosage: 20 MG, UNK
  3. SIMVASTATIN [Concomitant]
     Dosage: 10 MG, UNK
  4. FORTEO [Suspect]
     Indication: OSTEOPOROSIS
     Dosage: 20 UG, QD
     Dates: start: 20090101, end: 20100101
  5. RANITIDINE [Concomitant]
     Dosage: 150 MG, UNK
  6. AMLODIPINE [Concomitant]
     Dosage: 5 MG, UNK
  7. LEVOTHYROXINE [Concomitant]
     Dosage: 50 U, UNK
  8. LISINOPRIL [Concomitant]
     Dosage: 40 MG, UNK

REACTIONS (2)
  - MEDICATION ERROR [None]
  - OSTEOARTHRITIS [None]
